FAERS Safety Report 4388852-5 (Version None)
Quarter: 2004Q3

REPORT INFORMATION
  Report Type: 
  Country: None (occurrence: None)
  Receive Date: 20040702
  Receipt Date: 20040624
  Transmission Date: 20050211
  Serious: Yes (Other)
  Sender: FDA-Public Use
  Company Number: PHEH2004US06877

PATIENT
  Sex: Female

DRUGS (1)
  1. SANDOSTATIN LAR [Suspect]
     Dosage: UNK, QMO

REACTIONS (3)
  - ABNORMAL CLOTTING FACTOR [None]
  - POLYCYTHAEMIA [None]
  - WHITE BLOOD CELL COUNT INCREASED [None]
